FAERS Safety Report 25045754 (Version 1)
Quarter: 2025Q1

REPORT INFORMATION
  Report Type: Report from Study
  Country: US (occurrence: US)
  Receive Date: 20250306
  Receipt Date: 20250306
  Transmission Date: 20250409
  Serious: Yes (Hospitalization)
  Sender: EISAI
  Company Number: US-Eisai-EC-2025-185120

PATIENT
  Age: 59 Year
  Sex: Female

DRUGS (4)
  1. LENVIMA [Suspect]
     Active Substance: LENVATINIB
     Indication: Endometrial cancer
     Dates: start: 20240628
  2. LENVIMA [Suspect]
     Active Substance: LENVATINIB
     Dates: start: 202407, end: 202501
  3. LENVIMA [Suspect]
     Active Substance: LENVATINIB
     Dates: start: 202501
  4. KEYTRUDA [Suspect]
     Active Substance: PEMBROLIZUMAB
     Indication: Product used for unknown indication

REACTIONS (4)
  - Stomatitis [Not Recovered/Not Resolved]
  - Swollen tongue [Unknown]
  - Oropharyngeal pain [Unknown]
  - COVID-19 [Unknown]

NARRATIVE: CASE EVENT DATE: 20240801
